FAERS Safety Report 10476669 (Version 1)
Quarter: 2014Q3

REPORT INFORMATION
  Report Type: Spontaneous
  Country: AT (occurrence: None)
  Receive Date: 20140923
  Receipt Date: 20140923
  Transmission Date: 20150326
  Serious: Yes (Other)
  Sender: FDA-Public Use
  Company Number: NGX_02573_2014

PATIENT
  Age: 75 Year
  Sex: Male

DRUGS (2)
  1. QUTENZA [Suspect]
     Active Substance: CAPSAICIN
     Indication: DIABETIC NEUROPATHY
     Dosage: DF
     Route: 062
     Dates: start: 20140822, end: 20140822
  2. QUTENZA [Suspect]
     Active Substance: CAPSAICIN
     Indication: OFF LABEL USE
     Dosage: DF
     Route: 062
     Dates: start: 20140822, end: 20140822

REACTIONS (3)
  - Off label use [None]
  - Neuralgia [None]
  - Condition aggravated [None]

NARRATIVE: CASE EVENT DATE: 20140822
